FAERS Safety Report 9594936 (Version 4)
Quarter: 2014Q2

REPORT INFORMATION
  Report Type: Report from Study
  Country: TN (occurrence: TN)
  Receive Date: 20131004
  Receipt Date: 20140409
  Transmission Date: 20141212
  Serious: Yes (Hospitalization)
  Sender: FDA-Public Use
  Company Number: PHHO2013TN012880

PATIENT
  Age: 71 Year
  Sex: Male
  Weight: 58.5 kg

DRUGS (4)
  1. AMN107 [Suspect]
     Indication: CHRONIC MYELOID LEUKAEMIA
     Dosage: 300 MG, DAILY
     Route: 048
     Dates: start: 20120419, end: 20121105
  2. AMN107 [Suspect]
     Dosage: 400 MG, DAILY
     Route: 048
     Dates: start: 20121106, end: 20130909
  3. ANTICOAGULANTS [Concomitant]
  4. ASPIRIN [Concomitant]

REACTIONS (1)
  - Peripheral ischaemia [Recovered/Resolved]
